FAERS Safety Report 15539112 (Version 2)
Quarter: 2018Q4

REPORT INFORMATION
  Report Type: Report from Study
  Country: BR (occurrence: BR)
  Receive Date: 20181022
  Receipt Date: 20181026
  Transmission Date: 20190205
  Serious: Yes (Death, Hospitalization)
  Sender: FDA-Public Use
  Company Number: PHHY2018BR133147

PATIENT
  Age: 88 Year
  Sex: Female
  Weight: 60 kg

DRUGS (3)
  1. ENTRESTO [Suspect]
     Active Substance: SACUBITRIL\VALSARTAN
     Indication: CARDIAC FAILURE
     Dosage: 1 DF (49 MG SACUBITRIL, 51 MG VALSARTAN), Q12H
     Route: 048
     Dates: start: 201709
  2. CONCOR [Concomitant]
     Active Substance: BISOPROLOL FUMARATE
     Indication: CARDIAC DISORDER
     Dosage: 2 MG, UNK
     Route: 065
  3. SUSTRATE [Concomitant]
     Active Substance: PROPATYL NITRATE
     Indication: PAIN
     Route: 065

REACTIONS (6)
  - Cardiac failure congestive [Fatal]
  - Cardiogenic shock [Fatal]
  - Mass [Not Recovered/Not Resolved]
  - Hypertension [Fatal]
  - Malaise [Fatal]
  - Congestive cardiomyopathy [Fatal]

NARRATIVE: CASE EVENT DATE: 20180917
